FAERS Safety Report 6805207-1 (Version None)
Quarter: 2010Q2

REPORT INFORMATION
  Report Type: 
  Country: None (occurrence: None)
  Receive Date: 20100628
  Receipt Date: 20070907
  Transmission Date: 20101027
  Serious: No
  Sender: FDA-Public Use
  Company Number: US-PFIZER INC-2007075594

PATIENT
  Sex: Female
  Weight: 92.7 kg

DRUGS (9)
  1. XALATAN [Suspect]
     Indication: GLAUCOMA
     Dates: start: 20060101
  2. ALTACE [Concomitant]
  3. WARFARIN [Concomitant]
  4. HYDROCHLOROTHIAZIDE [Concomitant]
  5. LIPITOR [Concomitant]
     Indication: BLOOD CHOLESTEROL INCREASED
  6. LEVOXYL [Concomitant]
  7. GLYBURIDE [Concomitant]
     Indication: DIABETES MELLITUS
  8. ALPHAGAN [Concomitant]
  9. VERAPAMIL [Concomitant]
     Indication: CARDIAC FAILURE CONGESTIVE

REACTIONS (1)
  - MADAROSIS [None]
